FAERS Safety Report 4578292-8 (Version None)
Quarter: 2005Q1

REPORT INFORMATION
  Report Type: 
  Country: None (occurrence: None)
  Receive Date: 20050204
  Receipt Date: 20050204
  Transmission Date: 20050727
  Serious: Yes (Life-Threatening)
  Sender: FDA-Public Use
  Company Number: None

PATIENT
  Age: 70 Year
  Sex: Female
  Weight: 68.3 kg

DRUGS (13)
  1. ENALAPRIL INJECTIBLE / 1.25MG/ML/2 ML ABBOTT [Suspect]
     Indication: HYPERTENSION
     Dosage: 1.25 MG IV Q 6 HRS PM
     Route: 042
     Dates: start: 20050123
  2. PHENYTOIN [Concomitant]
  3. HYDRALAZINE [Concomitant]
  4. INSULIN HUM R [Concomitant]
  5. FAMOTIDINE [Concomitant]
  6. REGLAN [Concomitant]
  7. NIMOTOP [Concomitant]
  8. KEPPRA [Concomitant]
  9. DEXAMETHASONE [Concomitant]
  10. HEP [Concomitant]
  11. LEVOTHYROXINE [Concomitant]
  12. SENNA [Concomitant]
  13. NACL [Concomitant]

REACTIONS (2)
  - LARYNGEAL OEDEMA [None]
  - RESPIRATORY DISORDER [None]
